FAERS Safety Report 14755934 (Version 4)
Quarter: 2019Q2

REPORT INFORMATION
  Report Type: Spontaneous
  Country: US (occurrence: US)
  Receive Date: 20180413
  Receipt Date: 20190528
  Transmission Date: 20190711
  Serious: Yes (Hospitalization, Other)
  Sender: FDA-Public Use
  Company Number: US-PFIZER INC-2018151083

PATIENT
  Age: 65 Year
  Sex: Female
  Weight: 51.71 kg

DRUGS (4)
  1. IBRANCE [Suspect]
     Active Substance: PALBOCICLIB
     Dosage: 75 MG, CYCLIC [1 CAPSULE BY MOUTH DAILY FOR 21 DAYS AND OFF 7 DAYS]
     Route: 048
     Dates: start: 201905, end: 201905
  2. IBRANCE [Suspect]
     Active Substance: PALBOCICLIB
     Dosage: 100 MG, 1X/DAY (4 DAYS AND THEN TAKE ONE DAY OFF)
     Route: 048
     Dates: start: 2016
  3. IBRANCE [Suspect]
     Active Substance: PALBOCICLIB
     Indication: BREAST CANCER METASTATIC
     Dosage: 125 MG, CYCLIC (CAPSULE TAKEN BY MOUTH ONCE A DAY FOR 21 DAYS FOLLOWED BY 7 DAYS OFF IN A REPEATING)
     Route: 048
     Dates: start: 201706
  4. FASLODEX [Concomitant]
     Active Substance: FULVESTRANT
     Dosage: UNK, MONTHLY
     Dates: start: 2016

REACTIONS (12)
  - Urinary tract infection [Recovered/Resolved]
  - Neoplasm progression [Not Recovered/Not Resolved]
  - Alopecia [Not Recovered/Not Resolved]
  - Neutrophil count decreased [Unknown]
  - Infection [Recovered/Resolved]
  - Weight decreased [Recovered/Resolved]
  - Decreased appetite [Recovered/Resolved]
  - Cellulitis [Recovered/Resolved]
  - White blood cell count decreased [Recovering/Resolving]
  - Bacteraemia [Recovered/Resolved]
  - Malaise [Unknown]
  - Full blood count decreased [Unknown]

NARRATIVE: CASE EVENT DATE: 2016
